FAERS Safety Report 13481557 (Version 3)
Quarter: 2017Q2

REPORT INFORMATION
  Report Type: Report from Study
  Country: US (occurrence: US)
  Receive Date: 20170424
  Receipt Date: 20170516
  Transmission Date: 20170830
  Serious: Yes (Hospitalization, Other)
  Sender: FDA-Public Use
  Company Number: US-GILEAD-2017-0268940

PATIENT
  Age: 33 Year
  Sex: Male
  Weight: 95.69 kg

DRUGS (23)
  1. AZTREONAM LYSINE [Suspect]
     Active Substance: AZTREONAM LYSINE
     Indication: ACUTE RESPIRATORY FAILURE
     Dosage: 75 MG, TID
     Route: 055
     Dates: start: 20100330
  2. CALMOSEPTINE                       /00156514/ [Concomitant]
  3. SODIUM CHLORIDE. [Concomitant]
     Active Substance: SODIUM CHLORIDE
  4. ADRENALIN                          /00003901/ [Concomitant]
     Active Substance: EPINEPHRINE
  5. CLARITIN [Concomitant]
     Active Substance: LORATADINE
  6. ATIVAN [Concomitant]
     Active Substance: LORAZEPAM
     Indication: ANXIETY
  7. ZITHROMAX [Concomitant]
     Active Substance: AZITHROMYCIN DIHYDRATE
  8. CELEXA [Concomitant]
     Active Substance: CITALOPRAM HYDROBROMIDE
  9. AZTREONAM LYSINE [Suspect]
     Active Substance: AZTREONAM LYSINE
     Indication: BRONCHIECTASIS
     Dosage: 75 MG, UNK
     Route: 055
     Dates: start: 20120802
  10. TYLENOL [Concomitant]
     Active Substance: ACETAMINOPHEN
     Indication: PAIN
  11. COLYMYCIN                          /00013206/ [Concomitant]
  12. MIRALAX [Concomitant]
     Active Substance: POLYETHYLENE GLYCOL 3350
  13. KLOR-CON [Concomitant]
     Active Substance: POTASSIUM CHLORIDE
     Indication: BLOOD POTASSIUM DECREASED
  14. PROVENTIL [Concomitant]
     Active Substance: ALBUTEROL
     Indication: WHEEZING
  15. DEPAKOTE [Concomitant]
     Active Substance: DIVALPROEX SODIUM
  16. VALIUM [Concomitant]
     Active Substance: DIAZEPAM
     Indication: ANXIETY
  17. FLOVENT HFA [Concomitant]
     Active Substance: FLUTICASONE PROPIONATE
  18. CORTEF [Concomitant]
     Active Substance: HYDROCORTISONE
  19. PULMOZYME [Concomitant]
     Active Substance: DORNASE ALFA
  20. PIPERACILLIN/TAZOBACTAM [Concomitant]
     Active Substance: PIPERACILLIN SODIUM\TAZOBACTAM SODIUM
  21. BUSPAR [Concomitant]
     Active Substance: BUSPIRONE HYDROCHLORIDE
  22. LASIX [Concomitant]
     Active Substance: FUROSEMIDE
     Indication: OEDEMA
  23. PREVACID [Concomitant]
     Active Substance: LANSOPRAZOLE

REACTIONS (3)
  - Septic shock [Unknown]
  - Off label use [Not Recovered/Not Resolved]
  - Influenza [Recovered/Resolved]

NARRATIVE: CASE EVENT DATE: 20100330
